FAERS Safety Report 21089082 (Version 1)
Quarter: 2022Q3

REPORT INFORMATION
  Report Type: Spontaneous
  Country: JP (occurrence: JP)
  Receive Date: 20220715
  Receipt Date: 20220715
  Transmission Date: 20221027
  Serious: Yes (Hospitalization, Other)
  Sender: FDA-Public Use
  Company Number: JP-ELI_LILLY_AND_COMPANY-JP202105003339

PATIENT
  Age: 83 Year
  Sex: Male

DRUGS (2)
  1. DULOXETINE HYDROCHLORIDE [Suspect]
     Active Substance: DULOXETINE HYDROCHLORIDE
     Indication: Neuralgia
     Dosage: 20 MG, DAILY
     Route: 048
  2. MIRTAZAPINE [Concomitant]
     Active Substance: MIRTAZAPINE
     Indication: Depression
     Dosage: 15 MG, DAILY

REACTIONS (4)
  - Depression [Recovered/Resolved]
  - Inappropriate antidiuretic hormone secretion [Recovering/Resolving]
  - Suicidal ideation [Unknown]
  - Somnolence [Unknown]
